FAERS Safety Report 13114567 (Version 1)
Quarter: 2017Q1

REPORT INFORMATION
  Report Type: Report from Study
  Country: US (occurrence: US)
  Receive Date: 20170113
  Receipt Date: 20170113
  Transmission Date: 20170428
  Serious: Yes (Other)
  Sender: FDA-Public Use
  Company Number: US-009507513-1701USA000814

PATIENT
  Age: 20 Year
  Sex: Female

DRUGS (1)
  1. IMPLANON [Suspect]
     Active Substance: ETONOGESTREL
     Indication: CHEMICAL CONTRACEPTION
     Dosage: 1 IMPLANT (STRENGHT: 68 MG), FREQUENCY: UNKNOWN. ROUTE REPORTED AS SYSTEMIC
     Route: 059
     Dates: start: 20130716, end: 20150108

REACTIONS (2)
  - Maternal exposure before pregnancy [Recovered/Resolved]
  - Menstrual disorder [Unknown]
